FAERS Safety Report 7582007 (Version 4)
Quarter: 2013Q2

REPORT INFORMATION
  Report Type: Spontaneous
  Country: DE (occurrence: DE)
  Receive Date: 20100913
  Receipt Date: 20130503
  Transmission Date: 20140414
  Serious: Yes (Life-Threatening, Hospitalization, Disabling)
  Sender: FDA-Public Use
  Company Number: DE-NOVOPROD-314396

PATIENT
  Age: 71 Year
  Sex: Female

DRUGS (9)
  1. VICTOZA INJECTION [Suspect]
     Indication: TYPE 2 DIABETES MELLITUS
     Dosage: 0.6 MG, QD
     Route: 058
     Dates: start: 20100607, end: 20100613
  2. METFORMIN [Suspect]
     Indication: TYPE 2 DIABETES MELLITUS
     Dosage: 1000 MG, QD
     Route: 048
     Dates: start: 20100607, end: 20100613
  3. BI PRETERAX [Concomitant]
     Dosage: UNK
  4. SORTIS [Concomitant]
     Dosage: UNK
  5. PANTOZOL                           /01263202/ [Concomitant]
     Dosage: UNK
  6. EBRANTIL                           /00631801/ [Concomitant]
     Dosage: UNK
  7. AMLODIPIN [Concomitant]
     Dosage: UNK
  8. NEBILET [Concomitant]
     Dosage: UNK
  9. SALOFALK /00000301/ [Suspect]
     Dosage: UNK

REACTIONS (8)
  - Hyperkalaemia [Recovered/Resolved]
  - Hypothermia [Recovered/Resolved]
  - Lactic acidosis [Recovered/Resolved]
  - Renal failure acute [Recovered/Resolved]
  - Shock [Recovered/Resolved]
  - Hypoglycaemia [Recovered/Resolved]
  - Diarrhoea [Recovered/Resolved]
  - Weight decreased [Unknown]
